FAERS Safety Report 24677952 (Version 2)
Quarter: 2024Q4

REPORT INFORMATION
  Report Type: Spontaneous
  Country: JP (occurrence: JP)
  Receive Date: 20241129
  Receipt Date: 20241209
  Transmission Date: 20250114
  Serious: No
  Sender: UCB
  Company Number: JP-UCBJ-CD202411535UCBPHAPROD

PATIENT
  Age: 62 Year
  Sex: Male

DRUGS (1)
  1. VIMPAT [Suspect]
     Active Substance: LACOSAMIDE
     Indication: Epilepsy
     Dosage: 100 MILLIGRAM, 2X/DAY (BID)
     Route: 048
     Dates: start: 202307

REACTIONS (3)
  - Drug ineffective [Unknown]
  - Nasopharyngitis [Recovered/Resolved]
  - Off label use [Unknown]

NARRATIVE: CASE EVENT DATE: 20230701
